FAERS Safety Report 8241685 (Version 4)
Quarter: 2013Q1

REPORT INFORMATION
  Report Type: Spontaneous
  Country: US (occurrence: US)
  Receive Date: 20111111
  Receipt Date: 20130220
  Transmission Date: 20140127
  Serious: Yes (Hospitalization)
  Sender: FDA-Public Use
  Company Number: CHPA2011US015526

PATIENT
  Age: 46 Year
  Sex: Male

DRUGS (2)
  1. VOLTAREN GEL [Suspect]
     Indication: JOINT SWELLING
     Dosage: 4 G, BID
     Route: 061
     Dates: start: 20111026, end: 20111028
  2. BACTRIM [Suspect]

REACTIONS (28)
  - Cellulitis [Recovered/Resolved]
  - Haemorrhage [Recovered/Resolved]
  - Purulent discharge [Recovered/Resolved]
  - Skin burning sensation [Recovered/Resolved]
  - Local swelling [Recovered/Resolved]
  - Blister [Recovered/Resolved]
  - Erythema [Recovered/Resolved]
  - Skin exfoliation [Recovered/Resolved]
  - Pain in extremity [Unknown]
  - Thermal burn [Unknown]
  - Rash generalised [Recovering/Resolving]
  - Application site scar [Not Recovered/Not Resolved]
  - Induration [Unknown]
  - Drug ineffective for unapproved indication [Unknown]
  - Pyrexia [Recovered/Resolved]
  - Cyanosis [Unknown]
  - Headache [Unknown]
  - Chills [Unknown]
  - Hyperhidrosis [Unknown]
  - Asthenia [Unknown]
  - Dehydration [Unknown]
  - Discomfort [Unknown]
  - Stress [Unknown]
  - Activities of daily living impaired [Unknown]
  - Decreased appetite [Unknown]
  - Skin warm [Unknown]
  - Lymph node pain [Unknown]
  - Drug administered at inappropriate site [Unknown]
